FAERS Safety Report 4426332-9 (Version None)
Quarter: 2004Q3

REPORT INFORMATION
  Report Type: 
  Country: None (occurrence: None)
  Receive Date: 20040811
  Receipt Date: 20040729
  Transmission Date: 20050211
  Serious: Yes (Death, Hospitalization)
  Sender: FDA-Public Use
  Company Number: 2004226005SG

PATIENT
  Age: 69 Year
  Sex: Female

DRUGS (4)
  1. DELTA-CORTEF [Suspect]
     Indication: RHEUMATOID ARTHRITIS
     Dosage: 4 MG, QD, ORAL
     Route: 048
  2. SOLU-CORTEF [Suspect]
     Indication: PNEUMOCYSTIS CARINII PNEUMONIA
     Dosage: 100 MG, 6 HOURLY, IV
     Route: 042
  3. METHOTREXATE [Concomitant]
  4. BACTRIM [Concomitant]

REACTIONS (5)
  - DISEASE RECURRENCE [None]
  - PNEUMONIA [None]
  - PULMONARY HAEMORRHAGE [None]
  - SEPTIC SHOCK [None]
  - STRONGYLOIDIASIS [None]
